FAERS Safety Report 5716697-X (Version None)
Quarter: 2008Q2

REPORT INFORMATION
  Report Type: 
  Country: None (occurrence: None)
  Receive Date: 20080424
  Receipt Date: 20070604
  Transmission Date: 20081010
  Serious: No
  Sender: FDA-Public Use
  Company Number: US-BAYER-200711128BWH

PATIENT
  Age: 61 Year
  Sex: Male

DRUGS (4)
  1. LEVITRA [Suspect]
     Indication: ERECTILE DYSFUNCTION
     Dosage: TOTAL DAILY DOSE: 10 MG  UNIT DOSE: 20 MG
     Route: 048
     Dates: start: 20070404
  2. LEVITRA [Suspect]
     Dosage: TOTAL DAILY DOSE: 10 MG  UNIT DOSE: 20 MG
     Route: 048
     Dates: start: 20070404
  3. LIPITOR [Concomitant]
  4. LISINOPRIL [Concomitant]

REACTIONS (6)
  - ARTHRALGIA [None]
  - ERECTILE DYSFUNCTION [None]
  - FLUSHING [None]
  - GROIN PAIN [None]
  - MYALGIA [None]
  - PAIN [None]
